FAERS Safety Report 15506700 (Version 1)
Quarter: 2018Q4

REPORT INFORMATION
  Report Type: Report from Study
  Country: US (occurrence: US)
  Receive Date: 20181016
  Receipt Date: 20181016
  Transmission Date: 20190205
  Serious: No
  Sender: FDA-Public Use
  Company Number: US-IPSEN BIOPHARMACEUTICALS, INC.-2018-15785

PATIENT
  Sex: Male
  Weight: 27.24 kg

DRUGS (3)
  1. ADVIL [Concomitant]
     Active Substance: IBUPROFEN
  2. INCRELEX [Suspect]
     Active Substance: MECASERMIN
     Indication: PRIMARY INSULIN LIKE GROWTH FACTOR-1 DEFICIENCY
     Dosage: UPPER ARM AND UPPER THIGH, START DATE:1ST AND 2ND WEEK OF AUGUST
     Route: 058
  3. MELATONIN [Concomitant]
     Active Substance: MELATONIN
     Indication: SLEEP DISORDER
     Dosage: AT NIGHT TO SLEEP

REACTIONS (4)
  - Injection site pain [Recovered/Resolved]
  - Crying [Unknown]
  - Injection site pain [Unknown]
  - Injection site extravasation [Unknown]
